FAERS Safety Report 7608820-7 (Version None)
Quarter: 2011Q3

REPORT INFORMATION
  Report Type: 
  Country: None (occurrence: None)
  Receive Date: 20110714
  Receipt Date: 20110706
  Transmission Date: 20111222
  Serious: Yes (Death, Hospitalization, Other)
  Sender: FDA-Public Use
  Company Number: JP-ELI_LILLY_AND_COMPANY-JP201107002064

PATIENT
  Age: 75 Year
  Sex: Female

DRUGS (1)
  1. GEMZAR [Suspect]
     Indication: BILE DUCT CANCER STAGE II
     Dosage: 800 MG, OTHER
     Route: 042

REACTIONS (7)
  - INTERSTITIAL LUNG DISEASE [None]
  - DECREASED APPETITE [None]
  - DIARRHOEA [None]
  - ENTEROCOLITIS [None]
  - PYREXIA [None]
  - PNEUMOMEDIASTINUM [None]
  - DEHYDRATION [None]
